FAERS Safety Report 17955457 (Version 1)
Quarter: 2020Q2

REPORT INFORMATION
  Report Type: Spontaneous
  Country: US (occurrence: US)
  Receive Date: 20200626
  Receipt Date: 20200626
  Transmission Date: 20200714
  Serious: No
  Sender: FDA-Public Use
  Company Number: None

PATIENT
  Age: 41 Year
  Sex: Female

DRUGS (1)
  1. ENBREL [Suspect]
     Active Substance: ETANERCEPT
     Indication: ILL-DEFINED DISORDER
     Route: 058
     Dates: start: 20200605

REACTIONS (6)
  - Arthralgia [None]
  - Joint swelling [None]
  - Pain [None]
  - Drug ineffective [None]
  - Peripheral swelling [None]
  - Musculoskeletal stiffness [None]

NARRATIVE: CASE EVENT DATE: 202006
